FAERS Safety Report 4753127-9 (Version None)
Quarter: 2005Q3

REPORT INFORMATION
  Report Type: 
  Country: None (occurrence: None)
  Receive Date: 20050826
  Receipt Date: 20040813
  Transmission Date: 20060218
  Serious: Yes (Hospitalization, Disabling, Other)
  Sender: FDA-Public Use
  Company Number: US-MERCK-0408USA01209

PATIENT
  Age: 81 Year
  Sex: Male
  Weight: 91 kg

DRUGS (6)
  1. ZOCOR [Suspect]
     Indication: BLOOD CHOLESTEROL INCREASED
     Route: 048
  2. VERAPAMIL [Concomitant]
     Route: 065
     Dates: start: 19960101, end: 20030101
  3. PERCOCET [Concomitant]
     Route: 065
  4. VICODIN [Concomitant]
     Route: 065
  5. [THERAPY UNSPECIFIED] [Suspect]
     Route: 065
  6. ZOCOR [Suspect]
     Route: 048
     Dates: start: 19960101, end: 20040415

REACTIONS (15)
  - ABASIA [None]
  - CONVULSION [None]
  - DIPLEGIA [None]
  - DIZZINESS [None]
  - DRUG ADMINISTRATION ERROR [None]
  - FALL [None]
  - FEELING ABNORMAL [None]
  - INTERVERTEBRAL DISC COMPRESSION [None]
  - JOINT DISLOCATION [None]
  - JOINT SPRAIN [None]
  - MUSCLE SPASMS [None]
  - MUSCULAR WEAKNESS [None]
  - PAIN IN EXTREMITY [None]
  - PARAESTHESIA [None]
  - PARALYSIS [None]
